FAERS Safety Report 11024851 (Version 2)
Quarter: 2015Q2

REPORT INFORMATION
  Report Type: Spontaneous
  Country: JP (occurrence: None)
  Receive Date: 20150410
  Receipt Date: 20150424
  Transmission Date: 20150821
  Serious: Yes (Other)
  Sender: FDA-Public Use
  Company Number: JP2015JPN045663

PATIENT
  Age: 68 Year
  Sex: Male

DRUGS (4)
  1. EPIVIR [Suspect]
     Active Substance: LAMIVUDINE
     Indication: ACQUIRED IMMUNODEFICIENCY SYNDROME
  2. EPZICOM [Suspect]
     Active Substance: ABACAVIR SULFATE\LAMIVUDINE
     Route: 048
  3. EFAVIRENZ (EFAVIRENZ) [Suspect]
     Active Substance: EFAVIRENZ
     Route: 048
  4. RETROVIR [Suspect]
     Active Substance: ZIDOVUDINE

REACTIONS (13)
  - Immunology test abnormal [None]
  - Antinuclear antibody positive [None]
  - Antimitochondrial antibody positive [None]
  - Anti-GAD antibody positive [None]
  - DNA antibody positive [None]
  - Calculus urinary [None]
  - Glycosylated haemoglobin increased [None]
  - Type 1 diabetes mellitus [None]
  - Autoantibody positive [None]
  - Hepatic function abnormal [None]
  - Anaemia [None]
  - Rash [None]
  - Cutaneous lupus erythematosus [None]
